FAERS Safety Report 18261184 (Version 8)
Quarter: 2020Q4

REPORT INFORMATION
  Report Type: Spontaneous
  Country: US (occurrence: US)
  Receive Date: 20200914
  Receipt Date: 20201229
  Transmission Date: 20210113
  Serious: No
  Sender: FDA-Public Use
  Company Number: US-PHARMING-PHAUS2020000328

PATIENT

DRUGS (4)
  1. RUCONEST [Suspect]
     Active Substance: HUMAN C1-ESTERASE INHIBITOR
     Indication: HEREDITARY ANGIOEDEMA
     Dosage: 3700 IU, TWICE WEEKLY
     Route: 042
     Dates: start: 20200730
  2. RUCONEST [Suspect]
     Active Substance: HUMAN C1-ESTERASE INHIBITOR
     Dosage: 3700 IU, TWICE WEEKLY
     Route: 042
     Dates: start: 20200730
  3. RUCONEST [Suspect]
     Active Substance: HUMAN C1-ESTERASE INHIBITOR
     Dosage: 3700 IU, TWICE WEEKLY
     Route: 042
     Dates: start: 20200730
  4. RUCONEST [Suspect]
     Active Substance: HUMAN C1-ESTERASE INHIBITOR
     Indication: HEREDITARY ANGIOEDEMA
     Dosage: 3700 IU, TWICE WEEKLY
     Route: 042
     Dates: start: 20200730

REACTIONS (3)
  - Hereditary angioedema [Recovered/Resolved]
  - Tongue coated [Unknown]
  - Intentional product use issue [Unknown]
